FAERS Safety Report 18950767 (Version 1)
Quarter: 2021Q1

REPORT INFORMATION
  Report Type: Spontaneous
  Country: US (occurrence: US)
  Receive Date: 20210228
  Receipt Date: 20210228
  Transmission Date: 20210420
  Serious: No
  Sender: FDA-Public Use
  Company Number: US-ROCHE-2687837

PATIENT
  Sex: Female
  Weight: 95.34 kg

DRUGS (7)
  1. XOLAIR [Suspect]
     Active Substance: OMALIZUMAB
     Indication: RHINITIS ALLERGIC
     Dosage: ONGOING: UNKNOWN
     Route: 065
     Dates: start: 20200305
  2. SERTRALINE HCL [Concomitant]
     Active Substance: SERTRALINE HYDROCHLORIDE
     Dosage: ONGOING: UNKNOWN
     Route: 048
     Dates: start: 20200303
  3. CETIRIZINE HCL [Concomitant]
     Active Substance: CETIRIZINE HYDROCHLORIDE
     Dosage: ONGOING: UNKNOWN
     Route: 048
     Dates: start: 20200303
  4. XOLAIR [Suspect]
     Active Substance: OMALIZUMAB
  5. MELOXICAM. [Concomitant]
     Active Substance: MELOXICAM
     Dosage: ONGOING: UNKNOWN
     Route: 048
     Dates: start: 20200303
  6. MONTELUKAST [Concomitant]
     Active Substance: MONTELUKAST SODIUM
     Dosage: ONGOING: UNKNOWN
     Route: 048
     Dates: start: 20200303
  7. XOLAIR [Suspect]
     Active Substance: OMALIZUMAB

REACTIONS (3)
  - No adverse event [Unknown]
  - Off label use [Unknown]
  - Intentional product use issue [Unknown]
